FAERS Safety Report 25118336 (Version 3)
Quarter: 2025Q2

REPORT INFORMATION
  Report Type: Spontaneous
  Country: US (occurrence: US)
  Receive Date: 20250325
  Receipt Date: 20250501
  Transmission Date: 20250717
  Serious: No
  Sender: PFIZER
  Company Number: US-PFIZER INC-202500061384

PATIENT
  Age: 14 Year
  Sex: Male

DRUGS (2)
  1. GENOTROPIN [Suspect]
     Active Substance: SOMATROPIN
     Indication: Growth hormone deficiency
     Dosage: 1.6 MG, ALTERNATE DAY (ALTERNATE BETWEEN 1.6MG AND 1.8MG EVERY DAY, ADMINISTERED IN BUTT AND BELLY)
  2. GENOTROPIN [Suspect]
     Active Substance: SOMATROPIN
     Dosage: 1.8 MG, ALTERNATE DAY (ALTERNATE BETWEEN 1.6MG AND 1.8MG EVERY DAY, ADMINISTERED IN BUTT AND BELLY)

REACTIONS (2)
  - Injection site pain [Unknown]
  - Device physical property issue [Unknown]

NARRATIVE: CASE EVENT DATE: 20250201
